FAERS Safety Report 18799692 (Version 1)
Quarter: 2021Q1

REPORT INFORMATION
  Report Type: Spontaneous
  Country: US (occurrence: US)
  Receive Date: 20210128
  Receipt Date: 20210128
  Transmission Date: 20210419
  Serious: Yes (Death, Hospitalization)
  Sender: FDA-Public Use
  Company Number: None

PATIENT
  Age: 76 Year
  Sex: Female
  Weight: 59.8 kg

DRUGS (16)
  1. PIPERACILLIN/TAZOBACTAM [Suspect]
     Active Substance: PIPERACILLIN SODIUM\TAZOBACTAM SODIUM
     Indication: PNEUMONIA ASPIRATION
     Route: 042
     Dates: start: 20201221, end: 20201230
  2. 0.45% NACI [Concomitant]
     Dates: start: 20201230, end: 20201231
  3. CEFIRIAXONE 1 GRAM IN NS [Concomitant]
     Dates: start: 20201231, end: 20201231
  4. FUROSEMIDE 40MG [Concomitant]
     Active Substance: FUROSEMIDE
     Dates: start: 20201229, end: 20201230
  5. MEROPENEM 500MG [Concomitant]
     Active Substance: MEROPENEM
     Dates: start: 20201230, end: 20201231
  6. METRONIDAZOLE 500MG [Concomitant]
     Active Substance: METRONIDAZOLE
     Dates: start: 20201231, end: 20210102
  7. VALPROIC ACID IN NS [Suspect]
     Active Substance: VALPROIC ACID
     Indication: SEIZURE
     Route: 042
     Dates: start: 20201224, end: 20210102
  8. ALBUTEROL/IPRATROPIUM 0.25/0.5MG NEBS [Concomitant]
     Dates: start: 20201223, end: 20210102
  9. D5W + NS [Concomitant]
     Dates: start: 20201221, end: 20201228
  10. VANCOMYCIN IN NS [Concomitant]
     Dates: start: 20201221, end: 20201223
  11. POTASSIUM CHLORIDE PO PACKET [Concomitant]
     Dates: end: 20210101
  12. LACOSAMIDE 100MG IN NS [Concomitant]
     Dates: start: 20201221, end: 20201224
  13. LEVETIRACETAM 2000MG IN NS [Concomitant]
     Dates: start: 20201221, end: 20210102
  14. ACETAMINOPHEN 325MG [Concomitant]
     Dates: start: 20201221, end: 20210102
  15. CHOLESTYRAMINE. [Concomitant]
     Active Substance: CHOLESTYRAMINE
     Dates: start: 20201231, end: 20210102
  16. ENOXAPARIN 40MG [Concomitant]
     Active Substance: ENOXAPARIN
     Dates: start: 20210101, end: 20210102

REACTIONS (1)
  - Brain oedema [None]

NARRATIVE: CASE EVENT DATE: 20201230
